FAERS Safety Report 9575763 (Version 1)
Quarter: 2013Q4

REPORT INFORMATION
  Report Type: Spontaneous
  Country: US (occurrence: US)
  Receive Date: 20131001
  Receipt Date: 20131001
  Transmission Date: 20140711
  Serious: No
  Sender: FDA-Public Use
  Company Number: US-AMGEN-USASP2012057041

PATIENT
  Sex: Female

DRUGS (3)
  1. EPOGEN [Suspect]
     Indication: RENAL FAILURE CHRONIC
     Dosage: UNK
  2. EPOGEN [Suspect]
  3. IRON [Concomitant]
     Dosage: UNK

REACTIONS (1)
  - Serum ferritin increased [Unknown]
